FAERS Safety Report 5959096-8 (Version None)
Quarter: 2008Q4

REPORT INFORMATION
  Report Type: 
  Country: None (occurrence: None)
  Receive Date: 20081120
  Receipt Date: 20071120
  Transmission Date: 20090506
  Serious: No
  Sender: FDA-Public Use
  Company Number: A0695394A

PATIENT
  Age: 39 Year
  Sex: Female

DRUGS (2)
  1. WELLBUTRIN SR [Suspect]
     Indication: DEPRESSION
     Dosage: 150MG PER DAY
     Route: 048
     Dates: start: 20040101
  2. SINGULAIR [Concomitant]

REACTIONS (5)
  - BURNING SENSATION [None]
  - ERYTHEMA [None]
  - EYE SWELLING [None]
  - PRURITUS [None]
  - RASH ERYTHEMATOUS [None]
